FAERS Safety Report 4720969-5 (Version None)
Quarter: 2005Q3

REPORT INFORMATION
  Report Type: 
  Country: None (occurrence: None)
  Receive Date: 20050720
  Receipt Date: 20050708
  Transmission Date: 20060218
  Serious: Yes (Life-Threatening, Other)
  Sender: FDA-Public Use
  Company Number: 215951

PATIENT
  Sex: Male
  Weight: 82 kg

DRUGS (10)
  1. MABTHERA(RITUXIMAB) CONC FOR SOLUTION FOR INFUSION [Suspect]
     Indication: LYMPHOMA
     Dosage: 375 MG/M2, Q28D, INTRAVENOUS
     Route: 042
     Dates: start: 20040927
  2. FLUDARABINE PHOSPHATE [Suspect]
     Indication: LYMPHOMA
     Dosage: 25 MG/M2, Q28D, INTRAVENOUS
     Route: 042
     Dates: start: 20040920
  3. MITOXANTRONE [Suspect]
     Indication: LYMPHOMA
     Dosage: 10 MG/M2, Q28D, INTRAVENOUS
     Route: 042
     Dates: start: 20040920
  4. DEXAMETHASONE [Suspect]
     Indication: LYMPHOMA
     Dosage: 20 MG, Q28D, INTRAVENOUS
     Route: 042
     Dates: start: 20040920
  5. ACETAMINOPHEN [Concomitant]
  6. CHLORPHENAMIN (CHLORPHENIRAMINE MALEATE) [Concomitant]
  7. ONDANSETRON HCL [Concomitant]
  8. BACTRIM DS [Concomitant]
  9. ALLOPURINOL [Concomitant]
  10. FLUCONAZOLE [Concomitant]

REACTIONS (1)
  - NEUTROPENIA [None]
